FAERS Safety Report 8209330-9 (Version None)
Quarter: 2012Q1

REPORT INFORMATION
  Report Type: 
  Country: None (occurrence: None)
  Receive Date: 20120314
  Receipt Date: 20120305
  Transmission Date: 20120608
  Serious: Yes (Hospitalization)
  Sender: FDA-Public Use
  Company Number: US-BAYER-2011-067655

PATIENT
  Age: 25 Year
  Sex: Female
  Weight: 68 kg

DRUGS (3)
  1. YASMIN [Suspect]
     Indication: ORAL CONTRACEPTION
     Dosage: UNK
     Dates: start: 20030515, end: 20030629
  2. PROZAC [Concomitant]
     Indication: OBSESSIVE-COMPULSIVE DISORDER
     Dosage: UNK
     Dates: start: 20030601, end: 20040401
  3. NAPROXEN [Concomitant]
     Dosage: 550 MG, UNK
     Dates: start: 20030509

REACTIONS (6)
  - ANXIETY [None]
  - PAIN [None]
  - BACK PAIN [None]
  - OBSESSIVE-COMPULSIVE DISORDER [None]
  - PULMONARY EMBOLISM [None]
  - EMOTIONAL DISTRESS [None]
